FAERS Safety Report 7453406-0 (Version None)
Quarter: 2011Q2

REPORT INFORMATION
  Report Type: 
  Country: None (occurrence: None)
  Receive Date: 20110502
  Receipt Date: 20110207
  Transmission Date: 20111010
  Serious: No
  Sender: FDA-Public Use
  Company Number: US-ASTRAZENECA-2011SE06871

PATIENT
  Age: 28 Year
  Sex: Female

DRUGS (2)
  1. NEXIUM [Suspect]
     Route: 048
     Dates: start: 20110205
  2. TOPROL-XL [Suspect]
     Route: 048

REACTIONS (4)
  - VOMITING [None]
  - HYPERSENSITIVITY [None]
  - ABDOMINAL PAIN UPPER [None]
  - DIARRHOEA [None]
